FAERS Safety Report 25543228 (Version 1)
Quarter: 2025Q3

REPORT INFORMATION
  Report Type: Spontaneous
  Country: EU (occurrence: EU)
  Receive Date: 20250711
  Receipt Date: 20250711
  Transmission Date: 20251021
  Serious: Yes (Other)
  Sender: ACCORD
  Company Number: EU-Accord-493471

PATIENT
  Age: 7 Decade
  Sex: Female

DRUGS (8)
  1. OXALIPLATIN [Suspect]
     Active Substance: OXALIPLATIN
     Indication: Adenocarcinoma of colon
     Dates: start: 20211021
  2. FLUOROURACIL [Concomitant]
     Active Substance: FLUOROURACIL
     Indication: Adenocarcinoma of colon
     Dates: start: 20211021, end: 20230816
  3. LEUCOVORIN [Concomitant]
     Active Substance: LEUCOVORIN\LEUCOVORIN CALCIUM
     Indication: Adenocarcinoma of colon
     Dates: start: 20211021, end: 20230816
  4. PANITUMUMAB [Concomitant]
     Active Substance: PANITUMUMAB
     Indication: Adenocarcinoma of colon
     Dates: start: 20211021, end: 20230816
  5. OXALIPLATIN [Suspect]
     Active Substance: OXALIPLATIN
     Indication: Metastases to lymph nodes
     Dates: start: 20211021
  6. LEUCOVORIN [Concomitant]
     Active Substance: LEUCOVORIN\LEUCOVORIN CALCIUM
     Indication: Metastases to lymph nodes
     Dates: start: 20211021, end: 20230816
  7. FLUOROURACIL [Concomitant]
     Active Substance: FLUOROURACIL
     Indication: Metastases to lymph nodes
     Dates: start: 20211021, end: 20230816
  8. PANITUMUMAB [Concomitant]
     Active Substance: PANITUMUMAB
     Indication: Metastases to lymph nodes
     Dates: start: 20211021, end: 20230816

REACTIONS (1)
  - Polyneuropathy [Unknown]
